FAERS Safety Report 5307349-9 (Version None)
Quarter: 2007Q1

REPORT INFORMATION
  Report Type: 
  Country: None (occurrence: None)
  Receive Date: 20070201
  Receipt Date: 20061208
  Transmission Date: 20070707
  Serious: No
  Sender: FDA-Public Use
  Company Number: 2006PV026661

PATIENT
  Age: 63 Year
  Sex: Female
  Weight: 73.9363 kg

DRUGS (4)
  1. BYETTA [Suspect]
     Indication: DIABETES MELLITUS NON-INSULIN-DEPENDENT
     Dosage: SEE IMAGE
     Route: 058
     Dates: start: 20060901, end: 20061001
  2. BYETTA [Suspect]
     Indication: DIABETES MELLITUS NON-INSULIN-DEPENDENT
     Dosage: SEE IMAGE
     Route: 058
     Dates: start: 20061130
  3. METFORMIN HCL [Concomitant]
  4. GLUCOTROL [Concomitant]

REACTIONS (2)
  - DECREASED APPETITE [None]
  - MEDICATION ERROR [None]
